FAERS Safety Report 9991587 (Version 1)
Quarter: 2014Q1

REPORT INFORMATION
  Report Type: Spontaneous
  Country: US (occurrence: US)
  Receive Date: 20140310
  Receipt Date: 20140310
  Transmission Date: 20141002
  Serious: Yes (Other)
  Sender: FDA-Public Use
  Company Number: US-PFIZER INC-2014068571

PATIENT
  Age: 53 Year
  Sex: Female
  Weight: 75.28 kg

DRUGS (6)
  1. CHANTIX [Suspect]
     Indication: SMOKING CESSATION THERAPY
     Dosage: 0.5 MG, DAILY
     Dates: start: 201403, end: 201403
  2. CHANTIX [Suspect]
     Dosage: 0.5 MG, 2X/DAY
     Dates: start: 201403
  3. EFFEXOR XR [Suspect]
     Indication: DEPRESSION
     Dosage: 225 MG, DAILY
  4. EFFEXOR XR [Suspect]
     Indication: ANXIETY
  5. ATIVAN [Concomitant]
     Indication: ANXIETY
     Dosage: 0.5 MG, 3X/DAY
  6. OXYCODONE [Concomitant]
     Indication: BACK PAIN
     Dosage: 30 MG, 5X/DAY

REACTIONS (4)
  - Depression [Not Recovered/Not Resolved]
  - Negative thoughts [Not Recovered/Not Resolved]
  - Lethargy [Not Recovered/Not Resolved]
  - Nausea [Not Recovered/Not Resolved]
